FAERS Safety Report 6501284-6 (Version None)
Quarter: 2009Q4

REPORT INFORMATION
  Report Type: 
  Country: None (occurrence: None)
  Receive Date: 20091216
  Receipt Date: 20091211
  Transmission Date: 20100525
  Serious: Yes (Death)
  Sender: FDA-Public Use
  Company Number: FR-BRISTOL-MYERS SQUIBB COMPANY-14891311

PATIENT
  Age: 48 Year
  Sex: Female

DRUGS (2)
  1. ABILIFY [Suspect]
     Route: 048
     Dates: start: 20090101
  2. EFFEXOR [Suspect]
     Dates: start: 20090101

REACTIONS (1)
  - MYOCARDIAL INFARCTION [None]
